FAERS Safety Report 5510779-3 (Version None)
Quarter: 2007Q4

REPORT INFORMATION
  Report Type: 
  Country: None (occurrence: None)
  Receive Date: 20071107
  Receipt Date: 20071015
  Transmission Date: 20080405
  Serious: Yes (Other)
  Sender: FDA-Public Use
  Company Number: CHNY2007US01532

PATIENT
  Age: 70 Year
  Sex: Female

DRUGS (1)
  1. BUCKLEY'S MIXTURE (USA) (NCH) (DEXTROMETHORPHAN HYDROBROMIDE) SYRUP [Suspect]
     Indication: COUGH
     Dosage: 0.5 TSP, ONCE/SINGLE, ORAL
     Route: 048
     Dates: start: 20070329, end: 20070329

REACTIONS (10)
  - ANXIETY [None]
  - BALANCE DISORDER [None]
  - BRONCHITIS [None]
  - DIZZINESS [None]
  - DYSGEUSIA [None]
  - HEART RATE INCREASED [None]
  - HYPERTENSION [None]
  - STRABISMUS [None]
  - THROAT IRRITATION [None]
  - VISION BLURRED [None]
